FAERS Safety Report 7259483-4 (Version None)
Quarter: 2011Q1

REPORT INFORMATION
  Report Type: 
  Country: None (occurrence: None)
  Receive Date: 20110129
  Receipt Date: 20101012
  Transmission Date: 20110831
  Serious: Yes (Other)
  Sender: FDA-Public Use
  Company Number: US-MYLANLABS-2010S1018697

PATIENT
  Age: 34 Year
  Sex: Female

DRUGS (6)
  1. IRON [Concomitant]
     Indication: ANAEMIA
     Route: 048
  2. HERBAL ECHINACEA [Concomitant]
     Indication: PHYTOTHERAPY
     Route: 048
  3. LAMOTRIGINE [Suspect]
     Indication: DEPRESSION
     Route: 048
     Dates: start: 20100927, end: 20101010
  4. MULTIVITAMIN [Concomitant]
     Indication: VITAMIN SUPPLEMENTATION
     Route: 048
  5. LISINOPRIL [Concomitant]
     Indication: BLOOD PRESSURE INCREASED
     Route: 048
  6. HERBSTAT [Concomitant]
     Indication: PHYTOTHERAPY
     Route: 048

REACTIONS (1)
  - DRUG HYPERSENSITIVITY [None]
